FAERS Safety Report 13725947 (Version 2)
Quarter: 2017Q3

REPORT INFORMATION
  Report Type: Spontaneous
  Country: US (occurrence: US)
  Receive Date: 20170707
  Receipt Date: 20170717
  Transmission Date: 20171127
  Serious: Yes (Hospitalization, Other)
  Sender: FDA-Public Use
  Company Number: US-CELGENEUS-USA-20170700014

PATIENT
  Sex: Female

DRUGS (1)
  1. REVLIMID [Suspect]
     Active Substance: LENALIDOMIDE
     Indication: MANTLE CELL LYMPHOMA
     Dosage: 10 MILLIGRAM
     Route: 048
     Dates: start: 201705, end: 20170710

REACTIONS (4)
  - Infection [Unknown]
  - Dyspnoea [Unknown]
  - Asthenia [Unknown]
  - Stomatitis [Unknown]

NARRATIVE: CASE EVENT DATE: 2017
